FAERS Safety Report 5391501-0 (Version None)
Quarter: 2007Q3

REPORT INFORMATION
  Report Type: 
  Country: None (occurrence: None)
  Receive Date: 20070719
  Receipt Date: 20070706
  Transmission Date: 20080115
  Serious: Yes (Other)
  Sender: FDA-Public Use
  Company Number: SE-AMGEN-US234305

PATIENT
  Sex: Female

DRUGS (4)
  1. ENBREL [Suspect]
     Indication: RHEUMATOID ARTHRITIS
     Dosage: 50MG WEEKLY
     Route: 058
     Dates: start: 19991101, end: 19991201
  2. UNKNOWN [Suspect]
     Indication: RHEUMATOID ARTHRITIS
     Route: 048
     Dates: start: 19940101
  3. ROFECOXIB [Concomitant]
     Dosage: 25 MG
     Route: 048
  4. CALCIUM CARBONATE [Concomitant]
     Dosage: 500 MG
     Route: 065

REACTIONS (1)
  - IMPAIRED HEALING [None]
